FAERS Safety Report 9458983 (Version 3)
Quarter: 2013Q3

REPORT INFORMATION
  Report Type: Report from Study
  Country: GB (occurrence: GB)
  Receive Date: 20130814
  Receipt Date: 20130906
  Transmission Date: 20140515
  Serious: Yes (Hospitalization)
  Sender: FDA-Public Use
  Company Number: GB-009507513-1308GBR004256

PATIENT
  Age: 64 Year
  Sex: Male
  Weight: 87 kg

DRUGS (14)
  1. DEXAMETHASONE [Suspect]
     Indication: PLASMA CELL MYELOMA
     Dosage: 20 MG, ON DAYS 1,2,4,5,8,9,11,12 EVERY 21 DAYS.
     Route: 048
     Dates: start: 20130625, end: 20130723
  2. BORTEZOMIB [Suspect]
     Indication: PLASMA CELL MYELOMA
     Dosage: 1.3 MG/M2, ON DAYS 1, 4,8, 11, EVERY 21 DAYS
     Route: 058
     Dates: start: 20130625, end: 20130723
  3. MST (MORPHINE SULFATE) [Concomitant]
     Indication: PAIN
     Dosage: UNK
     Dates: start: 20130605
  4. TRAMADOL HYDROCHLORIDE [Concomitant]
     Indication: PAIN
     Dosage: UNK
     Dates: end: 20130725
  5. ACETAMINOPHEN (+) CODEINE PHOSPHATE [Concomitant]
     Indication: PAIN
     Dosage: UNK
  6. ORAMORPH [Concomitant]
     Indication: PAIN
     Dosage: UNK
     Dates: start: 20130606
  7. BONEFOS [Concomitant]
     Indication: PROPHYLAXIS
     Dosage: UNK
     Dates: start: 200908, end: 20130724
  8. ACYCLOVIR [Concomitant]
     Indication: HERPES ZOSTER
     Dosage: UNK
  9. SEPTRIN [Concomitant]
     Indication: ANTIFUNGAL PROPHYLAXIS
     Dosage: UNK
  10. FOLIC ACID [Concomitant]
     Dosage: UNK
  11. OMEPRAZOLE [Concomitant]
     Indication: DUODENAL ULCER
     Dosage: UNK
  12. DOCUSATE SODIUM [Concomitant]
  13. PAMIDRONATE DISODIUM [Concomitant]
  14. MORPHINE SULFATE [Concomitant]
     Indication: PAIN

REACTIONS (1)
  - Tumour pain [Recovering/Resolving]
